FAERS Safety Report 6538191-9 (Version None)
Quarter: 2010Q1

REPORT INFORMATION
  Report Type: 
  Country: None (occurrence: None)
  Receive Date: 20100114
  Receipt Date: 20100108
  Transmission Date: 20100710
  Serious: Yes (Death)
  Sender: FDA-Public Use
  Company Number: DE-EISAI INC.-E7273-00110-CLI-DE

PATIENT
  Age: 82 Year
  Sex: Female

DRUGS (2)
  1. TARGRETIN [Suspect]
     Dosage: UNKNOWN
     Route: 048
     Dates: end: 20090930
  2. LEVOTHYROXINE SODIUM [Suspect]
     Indication: HYPOTHYROIDISM
     Dosage: UNKNOWN

REACTIONS (1)
  - DEATH [None]
